FAERS Safety Report 10283606 (Version 3)
Quarter: 2014Q4

REPORT INFORMATION
  Report Type: Spontaneous
  Country: US (occurrence: None)
  Receive Date: 20140702
  Receipt Date: 20141110
  Transmission Date: 20150528
  Serious: Yes (Other)
  Sender: FDA-Public Use
  Company Number: 2014-US-007944

PATIENT
  Age: 85 Year
  Sex: Male

DRUGS (1)
  1. XYREM [Suspect]
     Active Substance: SODIUM OXYBATE
     Indication: NARCOLEPSY
     Dosage: 1.13 G, FIRST DOSE, ORAL
     Route: 048
     Dates: start: 201306, end: 2013

REACTIONS (2)
  - Leukaemia [None]
  - Rheumatoid arthritis [None]
